FAERS Safety Report 7076995-7 (Version None)
Quarter: 2010Q4

REPORT INFORMATION
  Report Type: 
  Country: None (occurrence: None)
  Receive Date: 20101022
  Receipt Date: 20100923
  Transmission Date: 20110411
  Serious: Yes (Other)
  Sender: FDA-Public Use
  Company Number: JPI-P-012407

PATIENT
  Age: 32 Year
  Sex: Female
  Weight: 63.5036 kg

DRUGS (4)
  1. XYREM [Suspect]
     Indication: NARCOLEPSY
     Dosage: ORAL; 8.5 GM (4.25 GM, 2 IN 1 D), ORAL
     Route: 048
     Dates: start: 20081101
  2. MODAFINIL [Concomitant]
  3. METFORMIN HYDROCHLORIDE [Concomitant]
  4. DROSPIRENONE AND ETHINYL ESTRADIOL [Concomitant]

REACTIONS (5)
  - MIGRAINE WITH AURA [None]
  - MULTIPLE SCLEROSIS [None]
  - OPTIC NEURITIS [None]
  - VITAMIN B12 DECREASED [None]
  - VITAMIN D DECREASED [None]
